FAERS Safety Report 10766746 (Version 2)
Quarter: 2015Q1

REPORT INFORMATION
  Report Type: Spontaneous
  Country: IT (occurrence: IT)
  Receive Date: 20150205
  Receipt Date: 20150212
  Transmission Date: 20150721
  Serious: Yes (Hospitalization)
  Sender: FDA-Public Use
  Company Number: IT-SA-2015SA011970

PATIENT
  Age: 93 Year
  Sex: Male

DRUGS (7)
  1. COVERSYL [Concomitant]
     Active Substance: PERINDOPRIL
  2. PLAVIX [Suspect]
     Active Substance: CLOPIDOGREL BISULFATE
     Indication: ATRIAL FIBRILLATION
     Route: 065
  3. CARDIOASPIRIN [Suspect]
     Active Substance: ASPIRIN
     Indication: ATRIAL FIBRILLATION
     Route: 065
  4. NITROGLYCERINE [Concomitant]
     Active Substance: NITROGLYCERIN
  5. CARDURA [Concomitant]
     Active Substance: DOXAZOSIN MESYLATE
  6. ALLOPURINOL. [Concomitant]
     Active Substance: ALLOPURINOL
  7. PANTOPRAZOLE [Concomitant]
     Active Substance: PANTOPRAZOLE SODIUM

REACTIONS (1)
  - Gastritis haemorrhagic [Recovered/Resolved]

NARRATIVE: CASE EVENT DATE: 20130326
